FAERS Safety Report 7400980-6 (Version None)
Quarter: 2011Q2

REPORT INFORMATION
  Report Type: 
  Country: None (occurrence: None)
  Receive Date: 20110407
  Receipt Date: 20110325
  Transmission Date: 20111010
  Serious: Yes (Hospitalization)
  Sender: FDA-Public Use
  Company Number: PHHY2011US18619

PATIENT
  Sex: Male

DRUGS (2)
  1. EXJADE [Suspect]
     Dosage: 1250 MG, DAILY
     Route: 048
  2. STEROIDS NOS [Concomitant]

REACTIONS (3)
  - HYPOAESTHESIA [None]
  - LUNG INFECTION [None]
  - LIVER FUNCTION TEST ABNORMAL [None]
